FAERS Safety Report 7077418-4 (Version None)
Quarter: 2010Q4

REPORT INFORMATION
  Report Type: 
  Country: None (occurrence: None)
  Receive Date: 20101101
  Receipt Date: 20101022
  Transmission Date: 20110411
  Serious: Yes (Hospitalization)
  Sender: FDA-Public Use
  Company Number: GB-BAYER-201042689GPV

PATIENT
  Age: 51 Year
  Sex: Male

DRUGS (6)
  1. ASPIRIN [Suspect]
     Indication: ANTICOAGULANT THERAPY
  2. DIPYRIDAMOLE [Suspect]
     Indication: ANTICOAGULANT THERAPY
  3. TINZAPARIN [Suspect]
     Indication: ANTICOAGULANT THERAPY
     Dosage: ADMINISTERED IN THE POSTERIOR BUTTOCK REGION
     Route: 058
  4. TINZAPARIN [Suspect]
     Dosage: ADMINISTERED IN THE POSTERIOR BUTTOCK REGION
     Route: 058
  5. TINZAPARIN [Suspect]
     Dosage: ADMINISTERED IN THE POSTERIOR BUTTOCK REGION
     Route: 058
  6. HEPARIN [Concomitant]
     Route: 042

REACTIONS (4)
  - COAGULOPATHY [None]
  - COMPARTMENT SYNDROME [None]
  - HYPOAESTHESIA [None]
  - MOTOR DYSFUNCTION [None]
